FAERS Safety Report 4470032-6 (Version None)
Quarter: 2004Q3

REPORT INFORMATION
  Report Type: 
  Country: None (occurrence: None)
  Receive Date: 20040920
  Receipt Date: 20040806
  Transmission Date: 20050211
  Serious: Yes (Disabling, Other)
  Sender: FDA-Public Use
  Company Number: PHEH2004US08631

PATIENT
  Age: 66 Year
  Sex: Female
  Weight: 67.1 kg

DRUGS (1)
  1. ZOMETA [Suspect]
     Indication: METASTASES TO BONE
     Dosage: 4 MG, QMO, INTRAVENOUS
     Route: 042
     Dates: start: 20010131, end: 20040701

REACTIONS (3)
  - OSTEONECROSIS [None]
  - PAIN IN JAW [None]
  - TOOTHACHE [None]
